FAERS Safety Report 5346203-3 (Version None)
Quarter: 2007Q2

REPORT INFORMATION
  Report Type: 
  Country: None (occurrence: None)
  Receive Date: 20070605
  Receipt Date: 20070521
  Transmission Date: 20071010
  Serious: Yes (Other)
  Sender: FDA-Public Use
  Company Number: FR-ROCHE-484604

PATIENT
  Age: 18 Year
  Sex: Male
  Weight: 64 kg

DRUGS (3)
  1. ROACCUTANE [Suspect]
     Indication: ACNE
     Route: 048
     Dates: start: 20061023, end: 20070220
  2. ROACCUTANE [Suspect]
     Route: 048
     Dates: start: 20070410
  3. RED BULL [Interacting]
     Route: 048

REACTIONS (3)
  - FOOD INTERACTION [None]
  - HYPERTRIGLYCERIDAEMIA [None]
  - INTERNATIONAL NORMALISED RATIO DECREASED [None]
